FAERS Safety Report 8059709-3 (Version None)
Quarter: 2012Q1

REPORT INFORMATION
  Report Type: 
  Country: None (occurrence: None)
  Receive Date: 20120120
  Receipt Date: 20120116
  Transmission Date: 20120608
  Serious: Yes (Death)
  Sender: FDA-Public Use
  Company Number: PHHY2012BR003924

PATIENT
  Sex: Female

DRUGS (5)
  1. EXELON [Suspect]
     Dosage: 3 MG, UNK
  2. FORMOTEROL FUMARATE [Suspect]
     Dosage: 12 MCG OF FORMOTEROL FUMARATE AND 400 MCG OF BUDESONIDE
  3. EXELON [Suspect]
     Dosage: 1.5 MG, UNK
  4. EXELON [Suspect]
     Dosage: 6 MG, UNK
  5. FORMOTEROL FUMARATE [Suspect]
     Dosage: 12 MCG OF FORMOTEROL FUMARATE AND 200 MCG OF BUDESONIDE

REACTIONS (1)
  - DEATH [None]
